FAERS Safety Report 13253127 (Version 4)
Quarter: 2018Q2

REPORT INFORMATION
  Report Type: Spontaneous
  Country: US (occurrence: US)
  Receive Date: 20170220
  Receipt Date: 20180611
  Transmission Date: 20180711
  Serious: Yes (Death)
  Sender: FDA-Public Use
  Company Number: US-ACADIA PHARMACEUTICALS INC.-ACA-2016-001501

PATIENT
  Age: 75 Year
  Sex: Male

DRUGS (19)
  1. SEROQUEL [Concomitant]
     Active Substance: QUETIAPINE FUMARATE
     Indication: PRODUCT USED FOR UNKNOWN INDICATION
  2. CLOTRIMAZOLE AND BETAMETHASONE DIPROPIONATE [Concomitant]
     Active Substance: BETAMETHASONE\BETAMETHASONE DIPROPIONATE\CLOTRIMAZOLE
     Indication: PRODUCT USED FOR UNKNOWN INDICATION
  3. ACETAMINOPHEN. [Concomitant]
     Active Substance: ACETAMINOPHEN
     Indication: PRODUCT USED FOR UNKNOWN INDICATION
  4. METOPROLOL. [Concomitant]
     Active Substance: METOPROLOL
     Indication: PRODUCT USED FOR UNKNOWN INDICATION
  5. TAMSULOSIN HCL [Concomitant]
     Active Substance: TAMSULOSIN HYDROCHLORIDE
     Indication: PRODUCT USED FOR UNKNOWN INDICATION
  6. LOPERAMIDE HCL [Concomitant]
     Active Substance: LOPERAMIDE HYDROCHLORIDE
     Indication: PRODUCT USED FOR UNKNOWN INDICATION
  7. CALCIUM CARBONATE. [Concomitant]
     Active Substance: CALCIUM CARBONATE
     Indication: PRODUCT USED FOR UNKNOWN INDICATION
  8. NUPLAZID [Suspect]
     Active Substance: PIMAVANSERIN TARTRATE
     Dosage: 17 MG, QD
     Route: 048
  9. POTASSIUM CHLORIDE. [Concomitant]
     Active Substance: POTASSIUM CHLORIDE
     Indication: PRODUCT USED FOR UNKNOWN INDICATION
  10. QUETIAPINE. [Concomitant]
     Active Substance: QUETIAPINE
     Indication: PRODUCT USED FOR UNKNOWN INDICATION
  11. NUPLAZID [Suspect]
     Active Substance: PIMAVANSERIN TARTRATE
     Indication: PARKINSON^S DISEASE
     Dosage: 34 MG, QD
     Route: 048
     Dates: start: 20161118, end: 2017
  12. LISINOPRIL. [Concomitant]
     Active Substance: LISINOPRIL
     Indication: PRODUCT USED FOR UNKNOWN INDICATION
  13. FUROSEMIDE. [Concomitant]
     Active Substance: FUROSEMIDE
     Indication: PRODUCT USED FOR UNKNOWN INDICATION
  14. DIGOXIN. [Concomitant]
     Active Substance: DIGOXIN
     Indication: PRODUCT USED FOR UNKNOWN INDICATION
  15. MAGNESIUM OXIDE. [Concomitant]
     Active Substance: MAGNESIUM OXIDE
     Indication: PRODUCT USED FOR UNKNOWN INDICATION
  16. DONEPEZIL. [Concomitant]
     Active Substance: DONEPEZIL
     Indication: PRODUCT USED FOR UNKNOWN INDICATION
  17. NAMENDA [Concomitant]
     Active Substance: MEMANTINE HYDROCHLORIDE
     Indication: PRODUCT USED FOR UNKNOWN INDICATION
  18. MELATONIN [Concomitant]
     Active Substance: MELATONIN
     Indication: PRODUCT USED FOR UNKNOWN INDICATION
  19. ASPIRIN. [Concomitant]
     Active Substance: ASPIRIN
     Indication: PRODUCT USED FOR UNKNOWN INDICATION

REACTIONS (4)
  - Diarrhoea [Unknown]
  - Abnormal behaviour [Unknown]
  - Death [Fatal]
  - Underdose [Unknown]

NARRATIVE: CASE EVENT DATE: 2016
